FAERS Safety Report 5849333-2 (Version None)
Quarter: 2008Q3

REPORT INFORMATION
  Report Type: 
  Country: None (occurrence: None)
  Receive Date: 20080819
  Receipt Date: 20080721
  Transmission Date: 20090109
  Serious: No
  Sender: FDA-Public Use
  Company Number: US-BAYER-200826053NA

PATIENT
  Age: 28 Year
  Sex: Female

DRUGS (4)
  1. MIRENA [Suspect]
     Indication: CONTRACEPTION
     Route: 015
     Dates: start: 20061001
  2. CLARITIN [Concomitant]
     Indication: DRUG USE FOR UNKNOWN INDICATION
  3. LAMICTAL [Concomitant]
     Indication: CONVULSION
  4. GREEN PILL [Concomitant]
     Indication: CONVULSION

REACTIONS (4)
  - ABDOMINAL DISTENSION [None]
  - BREAST TENDERNESS [None]
  - IUCD COMPLICATION [None]
  - MENSTRUATION DELAYED [None]
